FAERS Safety Report 9025119 (Version 1)
Quarter: 2013Q1

REPORT INFORMATION
  Report Type: Spontaneous
  Country: US (occurrence: US)
  Receive Date: 20130122
  Receipt Date: 20130122
  Transmission Date: 20140127
  Serious: Yes (Death)
  Sender: FDA-Public Use
  Company Number: US-WATSON-2013-00477

PATIENT
  Age: 33 Year
  Sex: Female

DRUGS (2)
  1. CLONAZEPAM [Suspect]
     Indication: PRODUCT USED FOR UNKNOWN INDICATION
     Dosage: UNK, UNKNOWN
     Route: 048
     Dates: end: 2011
  2. DIAZEPAM (WATSON LABORATORIES) [Suspect]
     Indication: PRODUCT USED FOR UNKNOWN INDICATION
     Dosage: UNK, UNKNOWN
     Route: 048
     Dates: end: 2011

REACTIONS (11)
  - Death [Fatal]
  - Disorientation [None]
  - Convulsion [None]
  - Cardiac arrest [None]
  - Ventricular tachycardia [None]
  - Hallucination [None]
  - Acute respiratory distress syndrome [None]
  - Septic shock [None]
  - Escherichia test positive [None]
  - Staphylococcus test positive [None]
  - Haemophilus test positive [None]
